FAERS Safety Report 5715218-5 (Version None)
Quarter: 2008Q2

REPORT INFORMATION
  Report Type: 
  Country: None (occurrence: None)
  Receive Date: 20080423
  Receipt Date: 20080411
  Transmission Date: 20081010
  Serious: Yes (Hospitalization)
  Sender: FDA-Public Use
  Company Number: JP-PFIZER INC-2007102586

PATIENT
  Sex: Male
  Weight: 79 kg

DRUGS (6)
  1. PREGABALIN [Suspect]
     Indication: POST HERPETIC NEURALGIA
     Route: 048
     Dates: start: 20070315, end: 20071127
  2. DOGMATYL [Concomitant]
     Route: 048
     Dates: start: 20071120, end: 20071127
  3. NORVASC [Concomitant]
     Route: 048
     Dates: start: 20041212, end: 20071127
  4. BLOPRESS [Concomitant]
     Route: 048
     Dates: start: 20040713, end: 20071127
  5. ALL OTHER THERAPEUTIC PRODUCTS [Concomitant]
     Dates: start: 20071025, end: 20071127
  6. TROPICAMIDE [Concomitant]
     Dates: start: 20071120, end: 20071120

REACTIONS (1)
  - GASTRODUODENAL ULCER [None]
